FAERS Safety Report 10555454 (Version 1)
Quarter: 2014Q4

REPORT INFORMATION
  Report Type: Spontaneous
  Country: DE (occurrence: DE)
  Receive Date: 20141030
  Receipt Date: 20141030
  Transmission Date: 20150529
  Serious: Yes (Congenital Anomaly, Other)
  Sender: FDA-Public Use
  Company Number: DE-TEVA-517197GER

PATIENT
  Age: 1 Day
  Sex: Male
  Weight: 3.17 kg

DRUGS (5)
  1. MCP-TROPFEN [Suspect]
     Active Substance: METOCLOPRAMIDE
     Indication: NAUSEA
     Dosage: ONE TO THREE TIMES PER MONTH
     Route: 064
  2. MIRTAZAPIN [Concomitant]
     Active Substance: MIRTAZAPINE
     Indication: PANIC DISORDER
     Dosage: 7.5 MILLIGRAM DAILY; 7.5 [MG/D ]/ DIDN`T TOLERATE MEDICATION, NO DETAILS
     Route: 064
     Dates: start: 20130807, end: 20130807
  3. GYNVITAL [Concomitant]
     Indication: PROPHYLAXIS OF NEURAL TUBE DEFECT
     Dosage: .4 MILLIGRAM DAILY;
     Route: 064
  4. PARACETAMOL [Concomitant]
     Active Substance: ACETAMINOPHEN
     Indication: PAIN
     Dosage: AT MOST 7 TIMES DURING PREGNANCY
     Route: 064
  5. OPIPRAMOL [Suspect]
     Active Substance: OPIPRAMOL
     Indication: PANIC DISORDER
     Dosage: 50 MILLIGRAM DAILY;
     Route: 064

REACTIONS (4)
  - Respiratory disorder neonatal [Recovered/Resolved]
  - Ventricular septal defect [Unknown]
  - Foetal exposure during pregnancy [Unknown]
  - Atrial septal defect [Unknown]

NARRATIVE: CASE EVENT DATE: 20140403
